FAERS Safety Report 5022521-3 (Version None)
Quarter: 2006Q2

REPORT INFORMATION
  Report Type: 
  Country: None (occurrence: None)
  Receive Date: 20060605
  Receipt Date: 20060523
  Transmission Date: 20061013
  Serious: Yes (Other)
  Sender: FDA-Public Use
  Company Number: 2006059161

PATIENT
  Age: 52 Year
  Sex: Male

DRUGS (1)
  1. LYRICA [Suspect]
     Indication: ILL-DEFINED DISORDER
     Dosage: 150 MG (1 D), ORAL
     Route: 048

REACTIONS (3)
  - BLOOD GLUCOSE INCREASED [None]
  - SKIN EXFOLIATION [None]
  - SKIN REACTION [None]
